FAERS Safety Report 13594470 (Version 2)
Quarter: 2017Q2

REPORT INFORMATION
  Report Type: Spontaneous
  Country: US (occurrence: US)
  Receive Date: 20170530
  Receipt Date: 20170616
  Transmission Date: 20170830
  Serious: Yes (Other)
  Sender: FDA-Public Use
  Company Number: US-TORRENT-00002765

PATIENT
  Age: 48 Year
  Sex: Male

DRUGS (6)
  1. CLOPIDOGREL [Suspect]
     Active Substance: CLOPIDOGREL BISULFATE
  2. HEPARIN [Concomitant]
     Active Substance: HEPARIN SODIUM
  3. TICAGRELOR [Concomitant]
     Active Substance: TICAGRELOR
  4. WARFARIN [Concomitant]
     Active Substance: WARFARIN
  5. ACETYLSALICYLIC ACID [Concomitant]
     Active Substance: ASPIRIN
  6. BIVALIRUDIN. [Concomitant]
     Active Substance: BIVALIRUDIN

REACTIONS (1)
  - Vascular stent thrombosis [Recovered/Resolved]
